FAERS Safety Report 24083581 (Version 1)
Quarter: 2024Q3

REPORT INFORMATION
  Report Type: Spontaneous
  Country: FR (occurrence: FR)
  Receive Date: 20240712
  Receipt Date: 20240712
  Transmission Date: 20241016
  Serious: Yes (Hospitalization)
  Sender: RANBAXY
  Company Number: FR-SUN PHARMACEUTICAL INDUSTRIES LTD-2024RR-455246

PATIENT
  Age: 21 Year
  Sex: Female
  Weight: 53 kg

DRUGS (3)
  1. QUETIAPINE [Suspect]
     Active Substance: QUETIAPINE
     Indication: Intentional overdose
     Dosage: 300 MG X 20 CP SINGLE DO
     Route: 048
     Dates: start: 20240312, end: 20240312
  2. CYAMEMAZINE [Suspect]
     Active Substance: CYAMEMAZINE
     Indication: Intentional overdose
     Dosage: 25 MG X 15 CP SINGLE DOSE
     Route: 048
     Dates: start: 20240312, end: 20240312
  3. DIAZEPAM [Suspect]
     Active Substance: DIAZEPAM
     Indication: Intentional overdose
     Dosage: NR
     Route: 048
     Dates: start: 20240312, end: 20240312

REACTIONS (4)
  - Somnolence [Recovered/Resolved]
  - Agitation [Recovered/Resolved]
  - Urinary retention [Recovered/Resolved]
  - Poisoning deliberate [Recovered/Resolved]

NARRATIVE: CASE EVENT DATE: 20240312
